FAERS Safety Report 9934423 (Version 2)
Quarter: 2014Q1

REPORT INFORMATION
  Report Type: Spontaneous
  Country: CA (occurrence: CA)
  Receive Date: 20140228
  Receipt Date: 20140310
  Transmission Date: 20141002
  Serious: Yes (Hospitalization)
  Sender: FDA-Public Use
  Company Number: CA-BAXTER-2014BAX009577

PATIENT
  Age: 65 Year
  Sex: Female

DRUGS (6)
  1. EXTRANEAL [Suspect]
     Indication: RENAL DISORDER
     Route: 033
     Dates: start: 2013, end: 201312
  2. EXTRANEAL [Suspect]
     Indication: PERITONEAL DIALYSIS
  3. PHYSIONEAL 40 GLUCOSE 1.36% SOLUTION FOR PERITONEAL DIALYSIS [Suspect]
     Indication: RENAL DISORDER
     Route: 033
     Dates: start: 2013
  4. PHYSIONEAL 40 GLUCOSE 1.36% SOLUTION FOR PERITONEAL DIALYSIS [Suspect]
     Indication: PERITONEAL DIALYSIS
  5. PHYSIONEAL 40 GLUCOSE 2.27% SOLUTION FOR PERITONEAL DIALYSIS [Suspect]
     Indication: RENAL DISORDER
     Route: 033
     Dates: start: 2013
  6. PHYSIONEAL 40 GLUCOSE 2.27% SOLUTION FOR PERITONEAL DIALYSIS [Suspect]
     Indication: PERITONEAL DIALYSIS

REACTIONS (1)
  - Umbilical hernia [Recovered/Resolved]
